FAERS Safety Report 6421285-6 (Version None)
Quarter: 2009Q4

REPORT INFORMATION
  Report Type: 
  Country: None (occurrence: None)
  Receive Date: 20091029
  Receipt Date: 20091029
  Transmission Date: 20100525
  Serious: No
  Sender: FDA-Public Use
  Company Number: None

PATIENT
  Age: 46 Year
  Sex: Male
  Weight: 86.1834 kg

DRUGS (1)
  1. ZICAM COLD REMEDY SPRAY ZICAM [Suspect]
     Indication: NASOPHARYNGITIS
     Dosage: 1 SPRAY EACH NOSTREL 2 NASAL 1 DOSE IN EVENING 1 IN
     Route: 045
     Dates: start: 20091007, end: 20091008

REACTIONS (2)
  - AGEUSIA [None]
  - ANOSMIA [None]
